FAERS Safety Report 12398330 (Version 1)
Quarter: 2016Q2

REPORT INFORMATION
  Report Type: Spontaneous
  Country: US (occurrence: None)
  Receive Date: 20160523
  Receipt Date: 20160523
  Transmission Date: 20160815
  Serious: Yes (Hospitalization)
  Sender: FDA-Public Use
  Company Number: None

PATIENT
  Age: 81 Year
  Sex: Female
  Weight: 64 kg

DRUGS (1)
  1. INVOKANA [Suspect]
     Active Substance: CANAGLIFLOZIN

REACTIONS (5)
  - Fall [None]
  - Blood pH decreased [None]
  - Urine ketone body present [None]
  - Fracture [None]
  - Tachycardia [None]

NARRATIVE: CASE EVENT DATE: 20160428
